FAERS Safety Report 9940220 (Version 1)
Quarter: 2014Q1

REPORT INFORMATION
  Report Type: Report from Study
  Country: US (occurrence: US)
  Receive Date: 20140303
  Receipt Date: 20140303
  Transmission Date: 20141002
  Serious: No
  Sender: FDA-Public Use
  Company Number: US-ABBVIE-13P-163-1036358-00

PATIENT
  Age: 59 Year
  Sex: Female
  Weight: 88.08 kg

DRUGS (14)
  1. HUMIRA [Suspect]
     Indication: CROHN^S DISEASE
     Dates: start: 201112, end: 201112
  2. HUMIRA [Suspect]
     Dates: start: 201112, end: 201112
  3. HUMIRA [Suspect]
     Dates: start: 201112
  4. LISINOPRIL [Concomitant]
     Indication: HYPERTENSION
  5. CELEBREX [Concomitant]
     Indication: ARTHRITIS
  6. XYZAL [Concomitant]
     Indication: HYPERSENSITIVITY
  7. DECULANT [Concomitant]
     Indication: GASTROOESOPHAGEAL REFLUX DISEASE
  8. DYAZIDE [Concomitant]
     Indication: HYPERTENSION
  9. K CHLOR [Concomitant]
     Indication: SUPPLEMENTATION THERAPY
  10. LEVOTHYROXINE [Concomitant]
     Indication: HYPOTHYROIDISM
  11. ATIVAN [Concomitant]
     Indication: PRODUCT USED FOR UNKNOWN INDICATION
  12. VISTARIL [Concomitant]
     Indication: PRODUCT USED FOR UNKNOWN INDICATION
  13. VIIBRYD [Concomitant]
     Indication: DEPRESSION
  14. VSL #3 PROBIOTIC [Concomitant]
     Indication: SUPPLEMENTATION THERAPY

REACTIONS (10)
  - Diarrhoea [Not Recovered/Not Resolved]
  - Muscle spasms [Not Recovered/Not Resolved]
  - Nausea [Not Recovered/Not Resolved]
  - Crohn^s disease [Not Recovered/Not Resolved]
  - Skin mass [Recovered/Resolved]
  - Drug ineffective [Not Recovered/Not Resolved]
  - Pruritus [Recovered/Resolved]
  - Secretion discharge [Recovered/Resolved]
  - Feeling abnormal [Not Recovered/Not Resolved]
  - Dermatitis contact [Recovered/Resolved]
